FAERS Safety Report 25101021 (Version 1)
Quarter: 2025Q1

REPORT INFORMATION
  Report Type: Report from Study
  Country: CA (occurrence: CA)
  Receive Date: 20250320
  Receipt Date: 20250320
  Transmission Date: 20250408
  Serious: Yes (Death, Other)
  Sender: IPSEN BIOPHARMACEUTICALS, INC.
  Company Number: CA-IPSEN Group, Research and Development-2025-06343

PATIENT
  Age: 88 Year
  Sex: Male

DRUGS (11)
  1. LANREOTIDE ACETATE [Suspect]
     Active Substance: LANREOTIDE ACETATE
     Indication: Gastroenteropancreatic neuroendocrine tumour disease
     Dosage: DEEP SC
     Route: 058
     Dates: start: 20220609
  2. ELIGARD [Concomitant]
     Active Substance: LEUPROLIDE ACETATE
     Route: 058
  3. ATORVASTATIN [Concomitant]
     Active Substance: ATORVASTATIN
  4. DUTASTERIDE [Concomitant]
     Active Substance: DUTASTERIDE
  5. MYRBETRIQ [Concomitant]
     Active Substance: MIRABEGRON
  6. TAMSULOSIN [Concomitant]
     Active Substance: TAMSULOSIN
  7. TELMISARTAN [Concomitant]
     Active Substance: TELMISARTAN
     Dosage: 1/2 CO DIE
  8. LACTULOSE SACHETS [Concomitant]
     Dosage: 667 MG/ML 10 ML DIE
  9. ACETAMINOPHEN [Concomitant]
     Active Substance: ACETAMINOPHEN
  10. BETADERM CREAM [Concomitant]
  11. DICLOFENAC DIETHYLAMINE [Concomitant]
     Active Substance: DICLOFENAC DIETHYLAMINE
     Dosage: BID PRN

REACTIONS (1)
  - Death [Fatal]

NARRATIVE: CASE EVENT DATE: 20240101
